FAERS Safety Report 12350737 (Version 1)
Quarter: 2016Q2

REPORT INFORMATION
  Report Type: Report from Study
  Country: FR (occurrence: FR)
  Receive Date: 20160510
  Receipt Date: 20160510
  Transmission Date: 20160815
  Serious: Yes (Other)
  Sender: FDA-Public Use
  Company Number: FR-ROCHE-1629483

PATIENT
  Age: 66 Year
  Sex: Male

DRUGS (8)
  1. COTAREG [Concomitant]
     Active Substance: HYDROCHLOROTHIAZIDE\VALSARTAN
  2. VEMURAFENIB [Suspect]
     Active Substance: VEMURAFENIB
     Indication: MALIGNANT MELANOMA
     Dosage: 4 TABS IN THE MORNING AND AT NIGHT
     Route: 048
     Dates: start: 20150624, end: 20150710
  3. VEMURAFENIB [Suspect]
     Active Substance: VEMURAFENIB
     Dosage: 2 TABS X 2/DAY
     Route: 048
     Dates: start: 20150723, end: 20150728
  4. INEXIUM [Concomitant]
     Active Substance: ESOMEPRAZOLE
     Route: 065
  5. ZOCOR [Concomitant]
     Active Substance: SIMVASTATIN
  6. DIAMICRON [Concomitant]
     Active Substance: GLICLAZIDE
  7. NABUCOX [Concomitant]
     Active Substance: NABUMETONE
  8. COBIMETINIB [Suspect]
     Active Substance: COBIMETINIB
     Indication: MALIGNANT MELANOMA
     Route: 048
     Dates: start: 20150624, end: 20150728

REACTIONS (12)
  - Blood alkaline phosphatase increased [Recovered/Resolved]
  - Decreased appetite [Recovered/Resolved]
  - Transaminases increased [Recovered/Resolved]
  - Cholestasis [Recovered/Resolved]
  - Acute kidney injury [Recovered/Resolved]
  - Gamma-glutamyltransferase increased [Recovered/Resolved]
  - Food intolerance [Recovered/Resolved]
  - Hepatocellular injury [Recovered/Resolved]
  - Asthenia [Recovered/Resolved]
  - Diarrhoea [Recovered/Resolved]
  - Vomiting [Recovered/Resolved]
  - Pyrexia [Recovered/Resolved]

NARRATIVE: CASE EVENT DATE: 20150710
